FAERS Safety Report 6692768-9 (Version None)
Quarter: 2010Q2

REPORT INFORMATION
  Report Type: 
  Country: None (occurrence: None)
  Receive Date: 20100422
  Receipt Date: 20100413
  Transmission Date: 20101027
  Serious: Yes (Other)
  Sender: FDA-Public Use
  Company Number: US-PFIZER INC-2010034565

PATIENT
  Sex: Female
  Weight: 96.14 kg

DRUGS (18)
  1. NEURONTIN [Suspect]
     Indication: BIPOLAR DISORDER
     Dosage: 100 MG, 2X/DAY
     Route: 048
  2. LYRICA [Suspect]
     Indication: FIBROMYALGIA
     Dosage: 50 MG, 3X/DAY
     Dates: start: 20080117, end: 20100204
  3. LYRICA [Suspect]
     Indication: BURNING SENSATION
     Dosage: 50 MG, 2X/DAY
  4. LYRICA [Suspect]
     Dosage: 150 MG, 2X/DAY
     Route: 048
     Dates: start: 20090101
  5. PLAVIX [Concomitant]
     Dosage: UNK
  6. VITAMINS, OTHER COMBINATIONS [Concomitant]
     Dosage: UNK
  7. KLONOPIN [Concomitant]
     Dosage: UNK
  8. STRATTERA [Concomitant]
     Dosage: UNK
  9. SYNTHROID [Concomitant]
     Dosage: UNK
  10. NEXIUM [Concomitant]
     Dosage: UNK
  11. FLONASE [Concomitant]
     Dosage: UNK
  12. BENADRYL [Concomitant]
     Dosage: UNK, AS NEEDED
  13. IRON [Concomitant]
     Dosage: 650 MG, DAILY
  14. BIOTIN [Concomitant]
     Dosage: UNK
  15. VITAMIN C [Concomitant]
     Dosage: 2000 MG, UNK
  16. VITAMIN D [Concomitant]
     Dosage: UNK
  17. POTASSIUM [Concomitant]
     Dosage: 1600 MG, UNK
  18. MULTI-VITAMINS [Concomitant]
     Dosage: UNK

REACTIONS (14)
  - BRADYPHRENIA [None]
  - BURNING SENSATION [None]
  - DIABETIC NEUROPATHY [None]
  - DISSOCIATIVE IDENTITY DISORDER [None]
  - FEELING ABNORMAL [None]
  - FIBROMYALGIA [None]
  - LEARNING DISORDER [None]
  - MALAISE [None]
  - NERVOUS SYSTEM DISORDER [None]
  - RENAL FAILURE [None]
  - SUICIDAL IDEATION [None]
  - SURGERY [None]
  - TREATMENT NONCOMPLIANCE [None]
  - VITAMIN B12 INCREASED [None]
